FAERS Safety Report 8434798 (Version 6)
Quarter: 2020Q3

REPORT INFORMATION
  Report Type: Report from Study
  Country: JP (occurrence: JP)
  Receive Date: 20120301
  Receipt Date: 20140730
  Transmission Date: 20201105
  Serious: Yes (Hospitalization, Other)
  Sender: FDA-Public Use
  Company Number: JP-ASTELLAS-2012US002291

PATIENT
  Age: 73 Year
  Sex: Female
  Weight: 105 kg

DRUGS (8)
  1. ONARTUZUMAB. [Suspect]
     Active Substance: ONARTUZUMAB
     Indication: NON-SMALL CELL LUNG CANCER
     Route: 042
     Dates: start: 20120110, end: 20120131
  2. ERLOTINIB [Suspect]
     Active Substance: ERLOTINIB
     Indication: NON-SMALL CELL LUNG CANCER
     Route: 048
     Dates: start: 20120110, end: 20120208
  3. AMLODIPINE BESILATE [Concomitant]
     Active Substance: AMLODIPINE BESYLATE
     Indication: HYPERTENSION
     Route: 048
     Dates: start: 2007, end: 20120222
  4. HIRUDOID [Concomitant]
     Active Substance: GLYCOSAMINOGLYCANS
     Indication: DRY SKIN
     Route: 061
     Dates: start: 20120117, end: 20120221
  5. RINDERON [Concomitant]
     Indication: RASH
     Route: 061
     Dates: start: 20120208
  6. MAGLAX [Concomitant]
     Active Substance: MAGNESIUM OXIDE
     Indication: CONSTIPATION
     Route: 048
     Dates: start: 20120215
  7. MYSLEE [Concomitant]
     Active Substance: ZOLPIDEM TARTRATE
     Indication: INSOMNIA
     Route: 048
     Dates: start: 20101211
  8. HACHIAZULE [Concomitant]
     Indication: RASH
     Route: 049
     Dates: start: 20120131, end: 20120221

REACTIONS (9)
  - Diarrhoea [Recovered/Resolved]
  - Keratitis [Recovered/Resolved]
  - Pulmonary embolism [Recovered/Resolved]
  - Dry skin [Unknown]
  - Deep vein thrombosis [Unknown]
  - Rash [Recovered/Resolved]
  - Blepharitis [Recovered/Resolved]
  - Pyrexia [Recovered/Resolved]
  - Paronychia [Recovered/Resolved]

NARRATIVE: CASE EVENT DATE: 20120113
